FAERS Safety Report 8804981 (Version 2)
Quarter: 2012Q4

REPORT INFORMATION
  Report Type: 
  Country: MY (occurrence: MY)
  Receive Date: 20120924
  Receipt Date: 20121003
  Transmission Date: 20130627
  Serious: Yes (Other)
  Sender: FDA-Public Use
  Company Number: MY-SANOFI-AVENTIS-2012SA067486

PATIENT
  Age: 71 Year
  Sex: Male
  Weight: 70 kg

DRUGS (2)
  1. CLEXANE [Suspect]
     Indication: PULMONARY EMBOLISM
     Route: 042
  2. WARFARIN [Concomitant]
     Indication: PULMONARY EMBOLISM
     Route: 048
     Dates: start: 20120822, end: 20120827

REACTIONS (1)
  - International normalised ratio increased [Recovered/Resolved]
